FAERS Safety Report 10185530 (Version 2)
Quarter: 2014Q2

REPORT INFORMATION
  Report Type: Spontaneous
  Country: US (occurrence: US)
  Receive Date: 20140521
  Receipt Date: 20140521
  Transmission Date: 20141212
  Serious: No
  Sender: FDA-Public Use
  Company Number: US-ASTRAZENECA-2013SE94374

PATIENT
  Age: 63 Year
  Sex: Female
  Weight: 43.1 kg

DRUGS (2)
  1. PULMICORT FLEXHALER [Suspect]
     Indication: ASTHMA LATE ONSET
     Dosage: 2 PUFFS BID
     Route: 055
     Dates: start: 201309
  2. PULMICORT FLEXHALER [Suspect]
     Indication: ASTHMA
     Dosage: 2 PUFFS BID
     Route: 055
     Dates: start: 201309

REACTIONS (2)
  - Stomatitis [Recovered/Resolved]
  - Device misuse [Unknown]
